FAERS Safety Report 25473079 (Version 1)
Quarter: 2025Q2

REPORT INFORMATION
  Report Type: Spontaneous
  Country: US (occurrence: US)
  Receive Date: 20250624
  Receipt Date: 20250624
  Transmission Date: 20250717
  Serious: No
  Sender: IPSEN BIOPHARMACEUTICALS, INC.
  Company Number: US-IPSEN Group, Research and Development-2025-14688

PATIENT
  Age: 5 Year
  Sex: Male

DRUGS (1)
  1. BYLVAY [Suspect]
     Active Substance: ODEVIXIBAT
     Indication: Bilirubin excretion disorder
     Dosage: WITH/OVER FOOD AND TAKE BY MOUTH ONCE DAILY WITH A MEAL
     Route: 048

REACTIONS (1)
  - Pruritus [Unknown]
